FAERS Safety Report 16338924 (Version 8)
Quarter: 2021Q1

REPORT INFORMATION
  Report Type: Report from Study
  Country: CA (occurrence: CA)
  Receive Date: 20190521
  Receipt Date: 20210215
  Transmission Date: 20210419
  Serious: Yes (Hospitalization, Disabling, Other)
  Sender: FDA-Public Use
  Company Number: CA-GLAXOSMITHKLINE-CA2019GSK057955

PATIENT
  Age: 62 Year
  Sex: Male

DRUGS (33)
  1. FLUTICASONE PROPIONATE+SALMETEROL XINAFOATE [Suspect]
     Active Substance: FLUTICASONE PROPIONATE\SALMETEROL XINAFOATE
     Dosage: 5 MG, BID
  2. FLUTICASONE. [Suspect]
     Active Substance: FLUTICASONE
     Indication: EOSINOPHILIC GRANULOMATOSIS WITH POLYANGIITIS
     Dosage: UNK
  3. METHOTREXATE. [Suspect]
     Active Substance: METHOTREXATE
     Dosage: 7.5 MG, Z  (ONCE A WEEK)
     Dates: start: 201101, end: 201105
  4. METHOTREXATE. [Suspect]
     Active Substance: METHOTREXATE
     Dosage: 25 MG, Z  (ONCE A WEEK)
     Dates: start: 201206
  5. PREDNISONE. [Suspect]
     Active Substance: PREDNISONE
     Dosage: 2 MG
  6. NUCALA [Concomitant]
     Active Substance: MEPOLIZUMAB
     Indication: EOSINOPHILIC GRANULOMATOSIS WITH POLYANGIITIS
     Dosage: 300 MG, Z, MONTHLY
     Route: 042
     Dates: start: 20190611
  7. NUCALA [Concomitant]
     Active Substance: MEPOLIZUMAB
     Dosage: 300 MG, Z, MONTHLY
     Route: 042
  8. CALCIUM [Suspect]
     Active Substance: CALCIUM
     Indication: PRODUCT USED FOR UNKNOWN INDICATION
     Dosage: UNK
  9. VITAMIN D [Suspect]
     Active Substance: VITAMIN D NOS
     Indication: PRODUCT USED FOR UNKNOWN INDICATION
     Dosage: UNK
  10. METHOTREXATE. [Suspect]
     Active Substance: METHOTREXATE
     Indication: PRODUCT USED FOR UNKNOWN INDICATION
     Dosage: 25 MG, Z (ONCE A WEEK)
     Dates: start: 200902
  11. SEPTRA DS [Suspect]
     Active Substance: SULFAMETHOXAZOLE\TRIMETHOPRIM
     Indication: PRODUCT USED FOR UNKNOWN INDICATION
     Dosage: UNK
     Dates: start: 200810
  12. SINUS RINSE [Suspect]
     Active Substance: SODIUM BICARBONATE\SODIUM CHLORIDE
     Indication: PRODUCT USED FOR UNKNOWN INDICATION
     Dosage: UNK
  13. METHOTREXATE. [Suspect]
     Active Substance: METHOTREXATE
     Dosage: 20 MG
     Dates: start: 201602
  14. PREDNISONE. [Suspect]
     Active Substance: PREDNISONE
     Dosage: 1 MG
  15. TRIMETHOPRIM AND SULFAMETHOXAZOLE [Suspect]
     Active Substance: SULFAMETHOXAZOLE\TRIMETHOPRIM
     Indication: PRODUCT USED FOR UNKNOWN INDICATION
     Dosage: UNK
  16. METHOTREXATE. [Suspect]
     Active Substance: METHOTREXATE
     Dosage: 15 MG
     Dates: start: 201112
  17. PREDNISONE. [Suspect]
     Active Substance: PREDNISONE
     Indication: PRODUCT USED FOR UNKNOWN INDICATION
     Dosage: 5 MG, QD
  18. FLUTICASONE PROPIONATE+SALMETEROL XINAFOATE [Suspect]
     Active Substance: FLUTICASONE PROPIONATE\SALMETEROL XINAFOATE
     Indication: EOSINOPHILIC GRANULOMATOSIS WITH POLYANGIITIS
     Dosage: 1 DF, BID
  19. LANSOPRAZOLE. [Suspect]
     Active Substance: LANSOPRAZOLE
     Indication: PRODUCT USED FOR UNKNOWN INDICATION
     Dosage: 30 MG, QD
  20. METHOTREXATE. [Suspect]
     Active Substance: METHOTREXATE
     Dosage: 15 MG, Z (ONCE A WEEK)
     Dates: start: 2010
  21. BICALUTAMIDE. [Suspect]
     Active Substance: BICALUTAMIDE
     Indication: PRODUCT USED FOR UNKNOWN INDICATION
     Dosage: 50 MG, QD
     Route: 048
  22. VENTOLIN [Suspect]
     Active Substance: ALBUTEROL SULFATE
     Indication: EOSINOPHILIC GRANULOMATOSIS WITH POLYANGIITIS
     Dosage: UNK UNK, PRN
  23. OMNARIS [Suspect]
     Active Substance: CICLESONIDE
     Indication: PRODUCT USED FOR UNKNOWN INDICATION
     Dosage: 2 PUFF(S)
     Route: 045
  24. PREDNISONE. [Suspect]
     Active Substance: PREDNISONE
     Dosage: 2 MG, QD
  25. ALENDRONATE [Suspect]
     Active Substance: ALENDRONATE SODIUM
     Indication: PRODUCT USED FOR UNKNOWN INDICATION
     Dosage: 70 MG, Z (ONCE PERWEEK)
     Route: 048
  26. ZOLADEX [Suspect]
     Active Substance: GOSERELIN ACETATE
     Indication: PRODUCT USED FOR UNKNOWN INDICATION
     Dosage: UNK
     Dates: start: 201904
  27. FOLATE [Suspect]
     Active Substance: FOLATE SODIUM
     Indication: PRODUCT USED FOR UNKNOWN INDICATION
     Dosage: 5 MG, QD (6 DAYS PER WEEK)
  28. RAMIPRIL. [Suspect]
     Active Substance: RAMIPRIL
     Indication: PRODUCT USED FOR UNKNOWN INDICATION
     Dosage: 10 MG, QD
     Route: 048
  29. PREDNISONE. [Suspect]
     Active Substance: PREDNISONE
     Dosage: 10 MG, QD
     Dates: start: 201211
  30. PREDNISONE. [Suspect]
     Active Substance: PREDNISONE
     Dosage: 7.5 MG, QD
     Dates: start: 201409
  31. CYCLOPHOSPHAMIDE. [Suspect]
     Active Substance: CYCLOPHOSPHAMIDE
     Dosage: 175 MG, QD
     Route: 048
     Dates: start: 20080815, end: 200901
  32. ADVAIR DISKUS [Suspect]
     Active Substance: FLUTICASONE PROPIONATE\SALMETEROL XINAFOATE
     Indication: PRODUCT USED FOR UNKNOWN INDICATION
     Dosage: 5 UG, BID, 1 PUFF
  33. CYCLOPHOSPHAMIDE. [Suspect]
     Active Substance: CYCLOPHOSPHAMIDE
     Indication: PRODUCT USED FOR UNKNOWN INDICATION
     Dosage: 1200 MG
     Route: 042
     Dates: start: 20080520

REACTIONS (33)
  - Ventricular hypokinesia [Unknown]
  - Respiratory tract infection [Unknown]
  - Nasal polyps [Unknown]
  - Obesity [Unknown]
  - Eosinophilic myocarditis [Unknown]
  - Pneumonia [Unknown]
  - Atopy [Unknown]
  - Asthma [Unknown]
  - Confusional state [Unknown]
  - Eosinophil count increased [Unknown]
  - Nodule [Unknown]
  - Haemorrhage [Unknown]
  - Hypertension [Unknown]
  - Eosinophilic granulomatosis with polyangiitis [Unknown]
  - Obstructive airways disorder [Unknown]
  - Central nervous system mass [Unknown]
  - Prostate cancer [Unknown]
  - Microangiopathy [Unknown]
  - Chronic sinusitis [Unknown]
  - Condition aggravated [Unknown]
  - Cardiac septal defect [Unknown]
  - Viral infection [Unknown]
  - Airway remodelling [Unknown]
  - Respiratory symptom [Unknown]
  - Blood immunoglobulin E increased [Unknown]
  - Lacrimation increased [Unknown]
  - Eosinophilic pneumonia [Unknown]
  - Renal disorder [Unknown]
  - Haematuria [Unknown]
  - Memory impairment [Unknown]
  - Wall motion score index abnormal [Unknown]
  - Productive cough [Unknown]
  - Lymphopenia [Unknown]

NARRATIVE: CASE EVENT DATE: 200901
